FAERS Safety Report 13025778 (Version 1)
Quarter: 2016Q4

REPORT INFORMATION
  Report Type: Spontaneous
  Country: US (occurrence: US)
  Receive Date: 20161214
  Receipt Date: 20161214
  Transmission Date: 20170207
  Serious: No
  Sender: FDA-Public Use
  Company Number: US-BAYER-2016-234545

PATIENT

DRUGS (1)
  1. MIRALAX [Suspect]
     Active Substance: POLYETHYLENE GLYCOL 3350
     Indication: COLON OPERATION
     Dosage: UNK
     Route: 048
     Dates: start: 20161208

REACTIONS (1)
  - Product use issue [None]

NARRATIVE: CASE EVENT DATE: 20161208
